FAERS Safety Report 4393131-6 (Version None)
Quarter: 2004Q3

REPORT INFORMATION
  Report Type: 
  Country: None (occurrence: None)
  Receive Date: 20040702
  Receipt Date: 20040409
  Transmission Date: 20050211
  Serious: Yes (Other)
  Sender: FDA-Public Use
  Company Number: 2004UW07229

PATIENT
  Age: 66 Year
  Sex: Male
  Weight: 90.7194 kg

DRUGS (5)
  1. CRESTOR [Suspect]
     Indication: BLOOD CHOLESTEROL INCREASED
     Dosage: 10 MG ONCE PO
     Route: 048
     Dates: start: 20040408
  2. NORVASC [Concomitant]
  3. SYNTHROID [Concomitant]
  4. TRICOR [Concomitant]
  5. ATENOLOL [Concomitant]

REACTIONS (1)
  - FAECES DISCOLOURED [None]
